FAERS Safety Report 15719995 (Version 1)
Quarter: 2018Q4

REPORT INFORMATION
  Report Type: Spontaneous
  Country: US (occurrence: US)
  Receive Date: 20181213
  Receipt Date: 20181213
  Transmission Date: 20190205
  Serious: No
  Sender: FDA-Public Use
  Company Number: US-ASTRAZENECA-2018SF56193

PATIENT

DRUGS (1)
  1. CRESTOR [Suspect]
     Active Substance: ROSUVASTATIN CALCIUM
     Dosage: 20 MG
     Route: 048

REACTIONS (3)
  - Weight decreased [Unknown]
  - Blood insulin abnormal [Unknown]
  - Blood glucose abnormal [Unknown]
